FAERS Safety Report 21923890 (Version 1)
Quarter: 2023Q1

REPORT INFORMATION
  Report Type: Spontaneous
  Country: CH (occurrence: CH)
  Receive Date: 20230130
  Receipt Date: 20230130
  Transmission Date: 20230417
  Serious: Yes (Death, Life-Threatening, Hospitalization, Other)
  Sender: FDA-Public Use
  Company Number: None

PATIENT
  Age: 58 Year
  Sex: Female

DRUGS (23)
  1. VANCOMYCIN HYDROCHLORIDE [Suspect]
     Active Substance: VANCOMYCIN HYDROCHLORIDE
     Indication: Infection
     Dosage: 19.10.22 1.5G, 20.10.-23.10.2022 1G EVERY 12H; 23.10.-25.10.2022 750 MG EVERY 12 HOURS; 29.10.-30.10
     Route: 042
     Dates: end: 20221121
  2. VANCOMYCIN HYDROCHLORIDE [Suspect]
     Active Substance: VANCOMYCIN HYDROCHLORIDE
     Indication: Infection
     Dosage: UNIT DOSE: 1.5 GRAM, FREQUENCY TIME : 1 DAY
     Route: 042
     Dates: start: 20221019, end: 20221019
  3. VANCOMYCIN HYDROCHLORIDE [Suspect]
     Active Substance: VANCOMYCIN HYDROCHLORIDE
     Indication: Infection
     Dosage: 2 GRAM DAILY; 1G EVERY 12H
     Route: 042
     Dates: start: 20221010, end: 20221023
  4. VANCOMYCIN HYDROCHLORIDE [Suspect]
     Active Substance: VANCOMYCIN HYDROCHLORIDE
     Indication: Infection
     Dosage: 1500 MILLIGRAM DAILY; 750 MG EVERY 12 HOURS
     Route: 042
     Dates: start: 20221023, end: 20221025
  5. VANCOMYCIN HYDROCHLORIDE [Suspect]
     Active Substance: VANCOMYCIN HYDROCHLORIDE
     Indication: Infection
     Dosage: UNIT DOSE: 1 G , FREQUENCY TIME : 12 HOURS
     Route: 042
     Dates: start: 20221029, end: 20221030
  6. VANCOMYCIN HYDROCHLORIDE [Suspect]
     Active Substance: VANCOMYCIN HYDROCHLORIDE
     Indication: Infection
     Dosage: UNIT DOSE: 500 MG , FREQUENCY TIME : 12 HOURS
     Route: 042
     Dates: start: 20221030, end: 20221103
  7. VANCOMYCIN HYDROCHLORIDE [Suspect]
     Active Substance: VANCOMYCIN HYDROCHLORIDE
     Indication: Infection
     Dosage: 2.5 GRAM DAILY; 1.5G-0-1G, UNIT DOSE : 2.5 GRAM
     Route: 042
     Dates: start: 20221103, end: 20221121
  8. Bioflorin [Concomitant]
     Indication: Product used for unknown indication
     Dosage: 3 DOSAGE FORMS DAILY; 1-1-1-0
     Route: 048
  9. IBUPROFEN [Concomitant]
     Active Substance: IBUPROFEN
     Indication: Product used for unknown indication
     Dosage: 1200 MILLIGRAM DAILY; 1-1-0-1, UNIT DOSE : 400 MG
     Route: 048
  10. PHENYDANTIN [Concomitant]
     Indication: Product used for unknown indication
     Dosage: 2.25 MILLIGRAM DAILY; 1-0.5-0.75-0, UNIT DOSE : 100 MG
     Route: 048
  11. MORPHINE HYDROCHLORIDE [Concomitant]
     Active Substance: MORPHINE HYDROCHLORIDE
     Indication: Product used for unknown indication
     Dosage: 20 MG/ML IN RESERVE MAX 4 MG AT INTERVALS OF AT LEAST 2 HOURS
     Route: 048
  12. ELTROXIN LF [Concomitant]
     Indication: Product used for unknown indication
     Dosage: 50 MCG 1 TAB MONDAY THROUGH FRIDAY; 100 MCG SATURDAY AND SUNDAY,
     Route: 048
  13. LAXIPEG [Concomitant]
     Indication: Product used for unknown indication
     Dosage: 1 DOSAGE FORMS DAILY; 1-0-0-0,UNIT DOSE : 1 DF
     Route: 048
  14. MORPHINE SULFATE [Concomitant]
     Active Substance: MORPHINE SULFATE
     Indication: Product used for unknown indication
     Dosage: 20 MILLIGRAM DAILY; 8 A.M. AND 8 P.M, UNIT DOSE : 10 MG
     Route: 048
  15. NOVALGIN (METAMIZOLE SODIUM) [Concomitant]
     Active Substance: METAMIZOLE SODIUM
     Indication: Product used for unknown indication
     Dosage: 2000 MILLIGRAM DAILY; 1-1-1-1, UNIT DOSE : 500 MG
     Route: 048
  16. PANTOPRAZOLE SODIUM [Concomitant]
     Active Substance: PANTOPRAZOLE SODIUM
     Indication: Product used for unknown indication
     Dosage: 20 MILLIGRAM DAILY; 1-0-0-0, UNIT DOSE : 20 MG
     Route: 048
  17. TORSEMIDE [Concomitant]
     Active Substance: TORSEMIDE
     Indication: Product used for unknown indication
     Dosage: 10 MILLIGRAM DAILY; 1-0-0-0, UNIT DOSE : 10 MG
     Route: 048
  18. TRAZODONE HYDROCHLORIDE [Concomitant]
     Active Substance: TRAZODONE HYDROCHLORIDE
     Indication: Product used for unknown indication
     Dosage: 50 MILLIGRAM DAILY; 0-0-0-1, UNIT DOSE : 50 MG
     Route: 048
  19. VITAMIN D3 [Concomitant]
     Active Substance: CHOLECALCIFEROL
     Indication: Product used for unknown indication
     Dosage: FRIDAYS: 2000E, VITAMIN D3 STREULI
     Route: 048
  20. VITAMIN D3 [Concomitant]
     Active Substance: CHOLECALCIFEROL
     Dosage: 5000 I.U.
     Route: 048
  21. PHENOBARBITAL [Concomitant]
     Active Substance: PHENOBARBITAL
     Indication: Product used for unknown indication
     Dosage: 50 MILLIGRAM DAILY; 1-0-0-0, UNIT DOSE : 50 MG
     Route: 048
  22. VALPROATE SODIUM [Concomitant]
     Active Substance: VALPROATE SODIUM
     Indication: Product used for unknown indication
     Dosage: 5 DOSAGE FORMS DAILY; 1.5-1.5-2-0, UNIT DOSE : 500 MG
     Route: 048
  23. PIPERACILLIN AND TAZOBACTAM [Concomitant]
     Active Substance: PIPERACILLIN SODIUM\TAZOBACTAM SODIUM
     Indication: Product used for unknown indication
     Dosage: 4.5 G IN 20 ML AQUA AD INJ UND 100 ML NACL 0.9%, 4.5 G I.V. EVERY 8 HOUR
     Route: 042

REACTIONS (1)
  - Acute kidney injury [Fatal]

NARRATIVE: CASE EVENT DATE: 20221122
